FAERS Safety Report 4555992-7 (Version None)
Quarter: 2005Q1

REPORT INFORMATION
  Report Type: 
  Country: None (occurrence: None)
  Receive Date: 20050118
  Receipt Date: 20041110
  Transmission Date: 20050727
  Serious: No
  Sender: FDA-Public Use
  Company Number: A03200403792

PATIENT
  Age: 48 Year
  Sex: Male

DRUGS (1)
  1. UROXATRAL [Suspect]
     Indication: PROSTATE CANCER
     Dosage: 10 MG OD - ORAL
     Route: 048
     Dates: start: 20041015

REACTIONS (1)
  - POLLAKIURIA [None]
